FAERS Safety Report 16672755 (Version 2)
Quarter: 2019Q3

REPORT INFORMATION
  Report Type: Report from Study
  Country: AU (occurrence: AU)
  Receive Date: 20190806
  Receipt Date: 20190917
  Transmission Date: 20191004
  Serious: Yes (Other)
  Sender: FDA-Public Use
  Company Number: AU-REGENERON PHARMACEUTICALS, INC.-2019-46151

PATIENT

DRUGS (4)
  1. EYLEA [Suspect]
     Active Substance: AFLIBERCEPT
     Indication: NEOVASCULAR AGE-RELATED MACULAR DEGENERATION
     Dosage: RIGHT EYE, DOSE AND TOTAL NUMBER OF INJECTIONS WERE NOT REPORTED
     Route: 031
     Dates: start: 20180327, end: 201810
  2. EYLEA [Suspect]
     Active Substance: AFLIBERCEPT
     Dosage: Q3MON, RIGHT EYE
     Route: 031
     Dates: start: 201810
  3. EYLEA [Suspect]
     Active Substance: AFLIBERCEPT
     Dosage: Q1MON, LEFT EYE
     Route: 031
     Dates: start: 201906
  4. EYLEA [Suspect]
     Active Substance: AFLIBERCEPT
     Dosage: EVERY 6 WEEKS, LEFT EYE
     Route: 031

REACTIONS (1)
  - Neovascular age-related macular degeneration [Recovering/Resolving]

NARRATIVE: CASE EVENT DATE: 201906
